FAERS Safety Report 8052641-0 (Version None)
Quarter: 2012Q1

REPORT INFORMATION
  Report Type: 
  Country: None (occurrence: None)
  Receive Date: 20120118
  Receipt Date: 20120110
  Transmission Date: 20120608
  Serious: Yes (Other)
  Sender: FDA-Public Use
  Company Number: JP-SANOFI-AVENTIS-2012SA003357

PATIENT
  Sex: Male

DRUGS (2)
  1. ZOLPIDEM [Suspect]
     Indication: INSOMNIA
     Route: 048
     Dates: start: 20050101
  2. ZOLPIDEM [Suspect]
     Indication: SCHIZOPHRENIA
     Route: 048
     Dates: start: 20050101

REACTIONS (4)
  - OEDEMA PERIPHERAL [None]
  - OFF LABEL USE [None]
  - ALTERED STATE OF CONSCIOUSNESS [None]
  - RENAL IMPAIRMENT [None]
